FAERS Safety Report 22055793 (Version 1)
Quarter: 2023Q1

REPORT INFORMATION
  Report Type: Report from Study
  Country: CA (occurrence: CA)
  Receive Date: 20230302
  Receipt Date: 20230302
  Transmission Date: 20230417
  Serious: Yes (Hospitalization)
  Sender: FDA-Public Use
  Company Number: CA-HLS-202300377

PATIENT
  Sex: Female

DRUGS (1)
  1. CLOZARIL [Suspect]
     Active Substance: CLOZAPINE
     Indication: Product used for unknown indication
     Route: 048
     Dates: start: 20221031, end: 20230209

REACTIONS (6)
  - Discomfort [Unknown]
  - Dizziness [Unknown]
  - Salivary hypersecretion [Unknown]
  - Hyperhidrosis [Unknown]
  - Paraesthesia [Unknown]
  - Tremor [Unknown]
